FAERS Safety Report 8652018 (Version 3)
Quarter: 2012Q4

REPORT INFORMATION
  Report Type: 
  Country: FR (occurrence: FR)
  Receive Date: 20120706
  Receipt Date: 20120911
  Transmission Date: 20130627
  Serious: Yes (Death, Other)
  Sender: FDA-Public Use
  Company Number: FR-JNJFOC-20120700031

PATIENT
  Age: 50 Year
  Sex: Female

DRUGS (6)
  1. DURAGESIC [Suspect]
     Indication: PRODUCT USED FOR UNKNOWN INDICATION
     Dosage: 11 patches at once-100 ug/hr
     Route: 062
  2. HYPNOVEL [Interacting]
     Indication: PRODUCT USED FOR UNKNOWN INDICATION
     Route: 054
  3. ZOLPIDEM [Suspect]
     Indication: PRODUCT USED FOR UNKNOWN INDICATION
     Route: 065
  4. PHENOBARBITAL [Suspect]
     Indication: PRODUCT USED FOR UNKNOWN INDICATION
     Route: 065
  5. ALCOHOL [Suspect]
     Indication: PRODUCT USED FOR UNKNOWN INDICATION
     Dosage: 0.65 g/L
     Route: 065
  6. THIOPENTAL SODIUM [Suspect]
     Indication: PRODUCT USED FOR UNKNOWN INDICATION
     Route: 042

REACTIONS (10)
  - Overdose [Fatal]
  - Toxicity to various agents [Fatal]
  - Drug interaction [Fatal]
  - Asphyxia [Not Recovered/Not Resolved]
  - Conjunctival hyperaemia [Not Recovered/Not Resolved]
  - Epistaxis [Not Recovered/Not Resolved]
  - Mouth haemorrhage [Not Recovered/Not Resolved]
  - Drug administered at inappropriate site [Unknown]
  - Cyanosis [None]
  - Completed suicide [None]
